FAERS Safety Report 6463299-6 (Version None)
Quarter: 2009Q4

REPORT INFORMATION
  Report Type: 
  Country: None (occurrence: None)
  Receive Date: 20091130
  Receipt Date: 20090625
  Transmission Date: 20100525
  Serious: Yes (Other)
  Sender: FDA-Public Use
  Company Number: US-AMGEN-TCS342624

PATIENT
  Sex: Male
  Weight: 72.6 kg

DRUGS (3)
  1. ENBREL [Suspect]
     Indication: RHEUMATOID ARTHRITIS
     Route: 058
     Dates: start: 20060501, end: 20090501
  2. METHOTREXATE [Concomitant]
     Route: 058
     Dates: start: 19900101
  3. COUMADIN [Concomitant]

REACTIONS (2)
  - INTERSTITIAL LUNG DISEASE [None]
  - MYCOBACTERIUM AVIUM COMPLEX INFECTION [None]
